FAERS Safety Report 9103337 (Version 1)
Quarter: 2013Q1

REPORT INFORMATION
  Report Type: Spontaneous
  Country: US (occurrence: US)
  Receive Date: 20130219
  Receipt Date: 20130219
  Transmission Date: 20140127
  Serious: Yes (Hospitalization)
  Sender: FDA-Public Use
  Company Number: US-GLAXOSMITHKLINE-A0718180A

PATIENT
  Age: 55 Year
  Sex: Female
  Weight: 131.8 kg

DRUGS (10)
  1. AVANDIA [Suspect]
     Indication: TYPE 2 DIABETES MELLITUS
     Dosage: 4MG TWICE PER DAY
     Route: 048
     Dates: start: 20031106, end: 20070604
  2. AVANDAMET [Suspect]
     Indication: TYPE 2 DIABETES MELLITUS
     Route: 048
     Dates: start: 20031209, end: 20070602
  3. GLUCOPHAGE [Concomitant]
  4. METFORMIN [Concomitant]
  5. COREG [Concomitant]
     Dates: start: 2004
  6. ZOCOR [Concomitant]
  7. ZOLOFT [Concomitant]
  8. ACTONEL [Concomitant]
  9. LASIX [Concomitant]
  10. LISINOPRIL [Concomitant]

REACTIONS (1)
  - Myocardial infarction [Unknown]
